FAERS Safety Report 18932295 (Version 8)
Quarter: 2023Q1

REPORT INFORMATION
  Report Type: Report from Study
  Country: JP (occurrence: JP)
  Receive Date: 20210224
  Receipt Date: 20230127
  Transmission Date: 20230418
  Serious: Yes (Hospitalization, Other)
  Sender: FDA-Public Use
  Company Number: JP-CHUGAI-A2021001146ROCHE

PATIENT
  Age: 63 Year
  Sex: Male
  Weight: 66.7 kg

DRUGS (50)
  1. BEVACIZUMAB [Suspect]
     Active Substance: BEVACIZUMAB
     Indication: Colon cancer
     Route: 041
     Dates: start: 20210105, end: 20210105
  2. BEVACIZUMAB [Suspect]
     Active Substance: BEVACIZUMAB
     Route: 041
     Dates: start: 20210128, end: 20210309
  3. BEVACIZUMAB [Suspect]
     Active Substance: BEVACIZUMAB
     Route: 041
     Dates: start: 20210511, end: 20210719
  4. BEVACIZUMAB [Suspect]
     Active Substance: BEVACIZUMAB
     Route: 041
     Dates: start: 20210804, end: 20210818
  5. BEVACIZUMAB [Suspect]
     Active Substance: BEVACIZUMAB
     Route: 041
     Dates: start: 20210921, end: 20211019
  6. FLUOROURACIL [Suspect]
     Active Substance: FLUOROURACIL
     Indication: Colon cancer
     Route: 040
     Dates: start: 20210105, end: 20210107
  7. FLUOROURACIL [Suspect]
     Active Substance: FLUOROURACIL
     Route: 041
     Dates: start: 20210105, end: 20210107
  8. FLUOROURACIL [Suspect]
     Active Substance: FLUOROURACIL
     Route: 040
     Dates: start: 20210128, end: 20210311
  9. FLUOROURACIL [Suspect]
     Active Substance: FLUOROURACIL
     Route: 041
     Dates: start: 20210128, end: 20210311
  10. FLUOROURACIL [Suspect]
     Active Substance: FLUOROURACIL
     Route: 040
     Dates: start: 20210330, end: 20210401
  11. FLUOROURACIL [Suspect]
     Active Substance: FLUOROURACIL
     Route: 041
     Dates: start: 20210330, end: 20210401
  12. FLUOROURACIL [Suspect]
     Active Substance: FLUOROURACIL
     Route: 040
     Dates: start: 20210413, end: 20210429
  13. FLUOROURACIL [Suspect]
     Active Substance: FLUOROURACIL
     Dosage: 4416 MILLIGRAM, ONCE/2WEEKS
     Route: 040
     Dates: start: 20210413, end: 20210429
  14. FLUOROURACIL [Suspect]
     Active Substance: FLUOROURACIL
     Route: 040
     Dates: start: 20210511, end: 20210721
  15. FLUOROURACIL [Suspect]
     Active Substance: FLUOROURACIL
     Dosage: 4416 MILLIGRAM, ONCE/2WEEKS
     Route: 040
     Dates: start: 20210511, end: 20210721
  16. FLUOROURACIL [Suspect]
     Active Substance: FLUOROURACIL
     Route: 040
     Dates: start: 20210804, end: 20210902
  17. FLUOROURACIL [Suspect]
     Active Substance: FLUOROURACIL
     Dosage: 4416 MILLIGRAM, ONCE/2WEEKS
     Route: 040
     Dates: start: 20210804, end: 20210902
  18. FLUOROURACIL [Suspect]
     Active Substance: FLUOROURACIL
     Route: 040
     Dates: start: 20210921, end: 20211019
  19. FLUOROURACIL [Suspect]
     Active Substance: FLUOROURACIL
     Dosage: 4416 MILLIGRAM, ONCE/2WEEKS
     Route: 040
     Dates: start: 20210921, end: 20211019
  20. IRINOTECAN HYDROCHLORIDE [Suspect]
     Active Substance: IRINOTECAN HYDROCHLORIDE
     Indication: Colon cancer
     Route: 041
     Dates: start: 20210105, end: 20210105
  21. IRINOTECAN HYDROCHLORIDE [Suspect]
     Active Substance: IRINOTECAN HYDROCHLORIDE
     Route: 041
     Dates: start: 20210128, end: 20210309
  22. IRINOTECAN HYDROCHLORIDE [Suspect]
     Active Substance: IRINOTECAN HYDROCHLORIDE
     Dosage: 230 MILLIGRAM, ONCE/2WEEKS
     Route: 041
     Dates: start: 20210330, end: 20210330
  23. IRINOTECAN HYDROCHLORIDE [Suspect]
     Active Substance: IRINOTECAN HYDROCHLORIDE
     Dosage: 230 MILLIGRAM, ONCE/2WEEKS
     Route: 041
     Dates: start: 20210413, end: 20210426
  24. IRINOTECAN HYDROCHLORIDE [Suspect]
     Active Substance: IRINOTECAN HYDROCHLORIDE
     Dosage: 230 MILLIGRAM, ONCE/2WEEKS
     Route: 041
     Dates: start: 20210511, end: 20210622
  25. OXALIPLATIN [Suspect]
     Active Substance: OXALIPLATIN
     Indication: Colon cancer
     Route: 041
     Dates: start: 20210105, end: 20210105
  26. OXALIPLATIN [Suspect]
     Active Substance: OXALIPLATIN
     Dosage: 119 MILLIGRAM, ONCE/2WEEKS
     Route: 041
     Dates: start: 20210128, end: 20210309
  27. OXALIPLATIN [Suspect]
     Active Substance: OXALIPLATIN
     Route: 041
     Dates: start: 20210330, end: 20210622
  28. LEVOLEUCOVORIN CALCIUM [Suspect]
     Active Substance: LEVOLEUCOVORIN CALCIUM
     Indication: Colon cancer
     Route: 041
     Dates: start: 20210105, end: 20210105
  29. LEVOLEUCOVORIN CALCIUM [Suspect]
     Active Substance: LEVOLEUCOVORIN CALCIUM
     Route: 041
     Dates: start: 20210128, end: 20210309
  30. LEVOLEUCOVORIN CALCIUM [Suspect]
     Active Substance: LEVOLEUCOVORIN CALCIUM
     Route: 041
     Dates: start: 20210330, end: 20210330
  31. LEVOLEUCOVORIN CALCIUM [Suspect]
     Active Substance: LEVOLEUCOVORIN CALCIUM
     Route: 041
     Dates: start: 20210413, end: 20210426
  32. LEVOLEUCOVORIN CALCIUM [Suspect]
     Active Substance: LEVOLEUCOVORIN CALCIUM
     Route: 041
     Dates: start: 20210511, end: 20210719
  33. LEVOLEUCOVORIN CALCIUM [Suspect]
     Active Substance: LEVOLEUCOVORIN CALCIUM
     Route: 041
     Dates: start: 20210804, end: 20210831
  34. LEVOLEUCOVORIN CALCIUM [Suspect]
     Active Substance: LEVOLEUCOVORIN CALCIUM
     Route: 041
     Dates: start: 20210921, end: 20211019
  35. PALONOSETRON HYDROCHLORIDE [Concomitant]
     Active Substance: PALONOSETRON HYDROCHLORIDE
     Dosage: 0.75 MILLIGRAM, ONCE/2WEEKS
     Route: 042
     Dates: start: 20210105, end: 20210105
  36. PALONOSETRON HYDROCHLORIDE [Concomitant]
     Active Substance: PALONOSETRON HYDROCHLORIDE
     Dosage: 0.75 MILLIGRAM, ONCE/2WEEKS
     Route: 042
     Dates: start: 20210128, end: 20210309
  37. PALONOSETRON HYDROCHLORIDE [Concomitant]
     Active Substance: PALONOSETRON HYDROCHLORIDE
     Dosage: 0.75 MILLIGRAM, ONCE/2WEEKS
     Route: 042
     Dates: start: 20210330, end: 20210622
  38. DEXAMETHASONE SODIUM PHOSPHATE [Concomitant]
     Active Substance: DEXAMETHASONE SODIUM PHOSPHATE
     Dosage: 9.9 MILLIGRAM, ONCE/2WEEKS
     Route: 042
     Dates: start: 20210105, end: 20210105
  39. DEXAMETHASONE SODIUM PHOSPHATE [Concomitant]
     Active Substance: DEXAMETHASONE SODIUM PHOSPHATE
     Dosage: 9.9 MILLIGRAM, ONCE/2WEEKS
     Route: 042
     Dates: start: 20210128, end: 20210309
  40. DEXAMETHASONE SODIUM PHOSPHATE [Concomitant]
     Active Substance: DEXAMETHASONE SODIUM PHOSPHATE
     Dosage: 9.9 MILLIGRAM, ONCE/2WEEKS
     Route: 042
     Dates: start: 20210330, end: 20210622
  41. DEXAMETHASONE [Concomitant]
     Active Substance: DEXAMETHASONE
     Dosage: 8 MILLIGRAM, ONCE/2WEEKS
     Route: 048
     Dates: start: 20210106, end: 20210108
  42. DEXAMETHASONE [Concomitant]
     Active Substance: DEXAMETHASONE
     Dosage: 8 MILLIGRAM, ONCE/2WEEKS
     Route: 048
     Dates: start: 20210129, end: 20210312
  43. DEXAMETHASONE [Concomitant]
     Active Substance: DEXAMETHASONE
     Dosage: 8 MILLIGRAM, ONCE/2WEEKS
     Route: 048
     Dates: start: 20210331, end: 20210625
  44. APREPITANT [Concomitant]
     Active Substance: APREPITANT
     Dosage: 125 MILLIGRAM, ONCE/2WEEKS
     Route: 048
     Dates: start: 20210105, end: 20210105
  45. APREPITANT [Concomitant]
     Active Substance: APREPITANT
     Dosage: 125 MILLIGRAM, ONCE/2WEEKS
     Route: 048
     Dates: start: 20210106, end: 20210107
  46. APREPITANT [Concomitant]
     Active Substance: APREPITANT
     Dosage: 125 MILLIGRAM, ONCE/2WEEKS
     Route: 048
     Dates: start: 20210128, end: 20210309
  47. APREPITANT [Concomitant]
     Active Substance: APREPITANT
     Dosage: 125 MILLIGRAM, ONCE/2WEEKS
     Route: 048
     Dates: start: 20210129, end: 20210311
  48. APREPITANT [Concomitant]
     Active Substance: APREPITANT
     Dosage: 125 MILLIGRAM, ONCE/2WEEKS
     Route: 048
     Dates: start: 20210330, end: 20210622
  49. APREPITANT [Concomitant]
     Active Substance: APREPITANT
     Dosage: 125 MILLIGRAM, ONCE/2WEEKS
     Route: 048
     Dates: start: 20210331, end: 20210624
  50. LOPERAMIDE HYDROCHLORIDE [Concomitant]
     Active Substance: LOPERAMIDE HYDROCHLORIDE
     Route: 065

REACTIONS (8)
  - Decreased appetite [Recovered/Resolved]
  - Hyponatraemia [Recovered/Resolved]
  - Hyperglycaemia [Recovered/Resolved]
  - Stomatitis [Recovered/Resolved]
  - Neutropenia [Recovering/Resolving]
  - White blood cell count decreased [Recovered/Resolved]
  - Encephalopathy [Recovered/Resolved]
  - Febrile neutropenia [Recovered/Resolved]

NARRATIVE: CASE EVENT DATE: 20210107
